FAERS Safety Report 20607464 (Version 2)
Quarter: 2022Q1

REPORT INFORMATION
  Report Type: Spontaneous
  Country: US (occurrence: US)
  Receive Date: 20220317
  Receipt Date: 20220329
  Transmission Date: 20220423
  Serious: No
  Sender: FDA-Public Use
  Company Number: US-PFIZER INC-202101767893

PATIENT
  Age: 12 Year
  Sex: Female

DRUGS (3)
  1. GENOTROPIN [Suspect]
     Active Substance: SOMATROPIN
     Dosage: 1.7 MG, DAILY
  2. GENOTROPIN [Suspect]
     Active Substance: SOMATROPIN
     Dosage: 1.6 MG, (1.6MG TUES/THURS/ SAT AND 1.8MG MON/WED/ FRI AND TAKES SUNDAY OFF. BY INJECTION)
     Dates: start: 2021
  3. GENOTROPIN [Suspect]
     Active Substance: SOMATROPIN
     Dosage: 1.8 MG, (1.6MG TUES/THURS/ SAT AND 1.8MG MON/WED/ FRI AND TAKES SUNDAY OFF. BY INJECTION)
     Dates: start: 2021

REACTIONS (4)
  - Product prescribing error [Unknown]
  - Device breakage [Unknown]
  - Device use error [Unknown]
  - Product dose omission issue [Unknown]
